FAERS Safety Report 22672322 (Version 3)
Quarter: 2025Q3

REPORT INFORMATION
  Report Type: Spontaneous
  Country: EU (occurrence: EU)
  Receive Date: 20230705
  Receipt Date: 20250911
  Transmission Date: 20251020
  Serious: Yes (Other)
  Sender: GLAXOSMITHKLINE
  Company Number: None

PATIENT
  Age: 60 Year
  Sex: Male

DRUGS (26)
  1. LAMOTRIGINE [Suspect]
     Active Substance: LAMOTRIGINE
     Indication: Bipolar disorder
     Dosage: 150 MG, QD (UP TO 150 MG/24 H)
     Route: 065
  2. PAROXETINE [Suspect]
     Active Substance: PAROXETINE
     Indication: Anxiety
     Route: 065
  3. PAROXETINE [Suspect]
     Active Substance: PAROXETINE
     Indication: Bipolar disorder
     Dosage: 40 MG, QD (40 MILLIGRAM, QD)
     Route: 065
  4. PAROXETINE [Suspect]
     Active Substance: PAROXETINE
     Indication: Depression
  5. HYDROXYZINE [Suspect]
     Active Substance: HYDROXYZINE HYDROCHLORIDE
     Indication: Bipolar disorder
     Dosage: 125 MG, 24D (125 MILLIGRAM, QH)
     Route: 065
  6. HYDROXYZINE [Suspect]
     Active Substance: HYDROXYZINE HYDROCHLORIDE
     Indication: Anxiety
     Dosage: 100 MG, 24D (100 MILLIGRAM, QH)
     Route: 065
  7. LORAZEPAM [Suspect]
     Active Substance: LORAZEPAM
     Indication: Bipolar disorder
     Route: 065
  8. LORAZEPAM [Suspect]
     Active Substance: LORAZEPAM
     Dosage: 2.5 MG, QD (2.5 MILLIGRAM, QD 2.5 MG/24H)
     Route: 065
  9. LORAZEPAM [Suspect]
     Active Substance: LORAZEPAM
     Dosage: 8 MG, QD (DOSES INCREASING TO 8 MG/24 H)
     Route: 065
  10. QUETIAPINE [Suspect]
     Active Substance: QUETIAPINE
     Indication: Bipolar disorder
     Dosage: 300 MG, QD (300 MILLIGRAM, QD (DOSES INCREASING TO 300 MG/24 H))
     Route: 065
  11. QUETIAPINE [Suspect]
     Active Substance: QUETIAPINE
     Indication: Anxiety
  12. REBOXETINE [Suspect]
     Active Substance: REBOXETINE
     Indication: Bipolar disorder
     Dosage: 4 MG, QD (4 MILLIGRAM, QD (4 MG/24HR)
     Route: 065
  13. REBOXETINE [Suspect]
     Active Substance: REBOXETINE
     Dosage: 8 MG, QD (8 MILLIGRAM, QD (8 MG/24HR)
     Route: 065
  14. REBOXETINE [Suspect]
     Active Substance: REBOXETINE
     Dosage: 8 MG, 24D (8 MILLIGRAM, QH)
     Route: 065
  15. REBOXETINE [Suspect]
     Active Substance: REBOXETINE
     Dosage: 4 MG, 24D (4 MILLIGRAM, QH)
     Route: 065
  16. MIANSERIN [Suspect]
     Active Substance: MIANSERIN
     Indication: Sleep disorder
     Dosage: 30 MG, QD (30 MILLIGRAM, QD (BEFORE NIGHT))
     Route: 065
  17. PROMETHAZINE [Suspect]
     Active Substance: PROMETHAZINE HYDROCHLORIDE
     Indication: Bipolar disorder
     Dosage: 100 MG, QD (100 MILLIGRAM, QH (100 MILLIGRAM PER 24 HOUR))
     Route: 065
  18. PROMETHAZINE [Suspect]
     Active Substance: PROMETHAZINE HYDROCHLORIDE
     Indication: Anxiety
  19. ZOLPIDEM [Suspect]
     Active Substance: ZOLPIDEM TARTRATE
     Indication: Bipolar disorder
     Dosage: 10 MG, QD (10 MILLIGRAM, QD (10 MG AT NIGHT ))
     Route: 065
  20. PREGABALIN [Suspect]
     Active Substance: PREGABALIN
     Indication: Bipolar disorder
     Dosage: 150 MG, QD (150 MILLIGRAM, QH (150 MILLIGRAM/24HOUR))
     Route: 065
  21. VENLAFAXINE [Suspect]
     Active Substance: VENLAFAXINE HYDROCHLORIDE
     Indication: Bipolar disorder
     Dosage: 75 MG, QD (75 MILLIGRAM, QD (75-150MG/24 HOUR))
     Route: 065
  22. VENLAFAXINE [Suspect]
     Active Substance: VENLAFAXINE HYDROCHLORIDE
     Dosage: 300 MG, QD (300 MILLIGRAM, QD (300 MILLIGRAM/24 HOUR))
     Route: 065
  23. VENLAFAXINE [Suspect]
     Active Substance: VENLAFAXINE HYDROCHLORIDE
     Dosage: 150 MG, QD (150 MILLIGRAM, QD (75-150MG/24 HOUR) )
     Route: 065
  24. TRIGLYCERIDES,UNSPECIFIED LENGTH [Suspect]
     Active Substance: TRIGLYCERIDES,UNSPECIFIED LENGTH
     Indication: Bipolar disorder
     Route: 065
  25. LITHIUM CARBONATE [Concomitant]
     Active Substance: LITHIUM CARBONATE
     Indication: Bipolar disorder
     Dosage: 1500 MG, QD (1500 MILLIGRAM, QD)
     Route: 065
  26. LITHIUM CARBONATE [Concomitant]
     Active Substance: LITHIUM CARBONATE
     Dosage: 1250 MG, QD (1250 MILLIGRAM, QD)
     Route: 065

REACTIONS (10)
  - Drug dependence [Recovered/Resolved]
  - Therapeutic product effect incomplete [Unknown]
  - Fear [Recovering/Resolving]
  - Depressed mood [Recovering/Resolving]
  - Therapeutic response decreased [Unknown]
  - Anxiety [Recovering/Resolving]
  - Sleep disorder [Recovering/Resolving]
  - Withdrawal syndrome [Recovered/Resolved]
  - Hepatic enzyme increased [Unknown]
  - Off label use [Unknown]
